FAERS Safety Report 4774364-3 (Version None)
Quarter: 2005Q3

REPORT INFORMATION
  Report Type: 
  Country: None (occurrence: None)
  Receive Date: 20050914
  Receipt Date: 20050404
  Transmission Date: 20060218
  Serious: Yes (Hospitalization)
  Sender: FDA-Public Use
  Company Number: 163-20785-05040046

PATIENT
  Age: 27 Year
  Sex: Male

DRUGS (1)
  1. THALOMID [Suspect]
     Indication: ASTROCYTOMA
     Dosage: 300 MG, QHS, ORAL
     Route: 048
     Dates: start: 20040607, end: 20040901

REACTIONS (1)
  - DEEP VEIN THROMBOSIS [None]
